FAERS Safety Report 8551691-5 (Version None)
Quarter: 2012Q3

REPORT INFORMATION
  Report Type: 
  Country: None (occurrence: None)
  Receive Date: 20120730
  Receipt Date: 20120727
  Transmission Date: 20120928
  Serious: Yes (Death)
  Sender: FDA-Public Use
  Company Number: AU-B.I. PHARMACEUTICALS,INC./RIDGEFIELD-2012-AU-01320AU

PATIENT
  Sex: Male

DRUGS (9)
  1. PRADAXA [Suspect]
     Indication: ATRIAL FIBRILLATION
  2. CIALIS [Concomitant]
     Route: 048
  3. PERINDOPRIL ERBUMINE [Concomitant]
     Dosage: 10 MG
     Route: 048
  4. OSTELIN VITAMIN D [Concomitant]
     Dosage: 1000 U
     Route: 048
  5. PRADAXA [Suspect]
     Indication: CEREBROVASCULAR ACCIDENT PROPHYLAXIS
     Dosage: 220 MG
     Dates: start: 20110715
  6. CELESTONE M [Concomitant]
     Dosage: 0.02%
     Route: 061
  7. ALLOPURINOL [Concomitant]
     Dosage: 300 MG
     Route: 048
  8. NEXIUM [Concomitant]
     Dosage: 20 MG
     Route: 048
  9. PANAMAX [Concomitant]
     Dosage: 2 TABLETS 3-4 HRLY, MAX 8/DAY
     Route: 048

REACTIONS (1)
  - PNEUMONIA [None]
